FAERS Safety Report 4731371-4 (Version None)
Quarter: 2005Q3

REPORT INFORMATION
  Report Type: 
  Country: None (occurrence: None)
  Receive Date: 20050801
  Receipt Date: 20050801
  Transmission Date: 20060218
  Serious: Yes (Life-Threatening, Hospitalization)
  Sender: FDA-Public Use
  Company Number: None

PATIENT
  Age: 53 Year
  Sex: Female
  Weight: 46.3 kg

DRUGS (1)
  1. BACTRIM [Suspect]

REACTIONS (1)
  - TOXIC EPIDERMAL NECROLYSIS [None]
